FAERS Safety Report 7490244-7 (Version None)
Quarter: 2011Q2

REPORT INFORMATION
  Report Type: 
  Country: None (occurrence: None)
  Receive Date: 20110519
  Receipt Date: 20110516
  Transmission Date: 20111010
  Serious: No
  Sender: FDA-Public Use
  Company Number: US-PFIZER INC-2011105132

PATIENT
  Sex: Male
  Weight: 81.633 kg

DRUGS (1)
  1. MEDROL [Suspect]
     Indication: ASTHMA
     Dosage: 4 MG, AS NEEDED

REACTIONS (4)
  - INSOMNIA [None]
  - MYALGIA [None]
  - ABDOMINAL DISCOMFORT [None]
  - ABDOMINAL DISTENSION [None]
